FAERS Safety Report 9291945 (Version 1)
Quarter: 2013Q2

REPORT INFORMATION
  Report Type: Spontaneous
  Country: US (occurrence: US)
  Receive Date: 20130516
  Receipt Date: 20130516
  Transmission Date: 20140414
  Serious: No
  Sender: FDA-Public Use
  Company Number: US-009507513-1305USA006766

PATIENT
  Age: 52 Year
  Sex: Female

DRUGS (4)
  1. DULERA [Suspect]
     Indication: ASTHMA
     Dosage: 2 PUFFS IN THE EVENING AND 2 PUFFS IN THE MORNING
     Route: 055
     Dates: start: 2011, end: 201211
  2. DULERA [Suspect]
     Indication: HYPERSENSITIVITY
     Dosage: UNK
     Route: 055
  3. PROAIR (ALBUTEROL SULFATE) [Concomitant]
  4. FLONASE [Concomitant]

REACTIONS (2)
  - Asthma [Recovering/Resolving]
  - Hypersensitivity [Recovering/Resolving]
